FAERS Safety Report 8271127-1 (Version None)
Quarter: 2012Q2

REPORT INFORMATION
  Report Type: 
  Country: None (occurrence: None)
  Receive Date: 20120410
  Receipt Date: 20120405
  Transmission Date: 20120825
  Serious: Yes (Other)
  Sender: FDA-Public Use
  Company Number: JP-PFIZER INC-2012078679

PATIENT
  Age: 71 Year
  Sex: Female

DRUGS (1)
  1. ALPRAZOLAM [Suspect]
     Indication: PSYCHOSOMATIC DISEASE
     Dosage: UNK
     Route: 048
     Dates: start: 20070401, end: 20120405

REACTIONS (3)
  - FEELING ABNORMAL [None]
  - DIZZINESS [None]
  - ALTERED STATE OF CONSCIOUSNESS [None]
